FAERS Safety Report 25794376 (Version 1)
Quarter: 2025Q3

REPORT INFORMATION
  Report Type: Spontaneous
  Country: US (occurrence: US)
  Receive Date: 20250912
  Receipt Date: 20250912
  Transmission Date: 20251021
  Serious: No
  Sender: GILEAD
  Company Number: US-GILEAD-2025-0725989

PATIENT
  Age: 44 Year
  Sex: Male
  Weight: 91.61 kg

DRUGS (2)
  1. YEZTUGO [Suspect]
     Active Substance: LENACAPAVIR SODIUM
     Indication: Product used for unknown indication
     Route: 065
     Dates: start: 20250822
  2. YEZTUGO [Suspect]
     Active Substance: LENACAPAVIR SODIUM
     Indication: Product used for unknown indication
     Route: 065

REACTIONS (2)
  - Injection site nodule [Unknown]
  - Injection site discharge [Unknown]

NARRATIVE: CASE EVENT DATE: 20250822
